FAERS Safety Report 7387032-9 (Version None)
Quarter: 2011Q1

REPORT INFORMATION
  Report Type: 
  Country: None (occurrence: None)
  Receive Date: 20110331
  Receipt Date: 20110301
  Transmission Date: 20110831
  Serious: Yes (Hospitalization, Other)
  Sender: FDA-Public Use
  Company Number: US-BAYER-200942404NA

PATIENT
  Sex: Female
  Weight: 95 kg

DRUGS (9)
  1. ZYRTEC-D 12 HOUR [Concomitant]
     Dosage: UNK
     Dates: start: 20080527
  2. METHYLPREDNISOLONE [Concomitant]
     Dosage: UNK
     Dates: start: 20080604
  3. YAZ [Suspect]
     Indication: ACNE
     Dosage: UNK
     Dates: start: 20080401, end: 20090601
  4. AZITHROMYCIN [Concomitant]
     Dosage: UNK
     Dates: start: 20080523
  5. YASMIN [Suspect]
     Indication: HEADACHE
     Dosage: 1 DF (DAILY DOSE), QD, ORAL
     Route: 048
     Dates: start: 20080418, end: 20090710
  6. YAZ [Suspect]
     Indication: HEADACHE
  7. AMOXICILLIN [Concomitant]
     Dosage: UNK
     Dates: start: 20090202
  8. OXYCODONE [Concomitant]
     Dosage: UNK
     Dates: start: 20080625
  9. YAZ [Suspect]
     Indication: PREMENSTRUAL SYNDROME

REACTIONS (4)
  - HYPOAESTHESIA [None]
  - CHEST PAIN [None]
  - PULMONARY EMBOLISM [None]
  - DYSPNOEA [None]
